FAERS Safety Report 25759378 (Version 1)
Quarter: 2025Q3

REPORT INFORMATION
  Report Type: Spontaneous
  Country: EU (occurrence: EU)
  Receive Date: 20250904
  Receipt Date: 20250904
  Transmission Date: 20251021
  Serious: Yes (Other)
  Sender: TAKEDA
  Company Number: EU-TAKEDA-2025TUS076384

PATIENT
  Age: 67 Year
  Sex: Female

DRUGS (1)
  1. LIVTENCITY [Suspect]
     Active Substance: MARIBAVIR
     Indication: Cytomegalovirus infection reactivation
     Dosage: 400 MILLIGRAM, BID
     Dates: start: 20250619

REACTIONS (2)
  - Graft versus host disease [Unknown]
  - Cytomegalovirus infection [Unknown]
